FAERS Safety Report 8396258-7 (Version None)
Quarter: 2012Q1

REPORT INFORMATION
  Report Type: 
  Country: None (occurrence: None)
  Receive Date: 20120323
  Receipt Date: 20110901
  Transmission Date: 20120608
  Serious: Yes (Hospitalization)
  Sender: FDA-Public Use
  Company Number: 163-21880-11072976

PATIENT
  Age: 64 Year
  Sex: Female
  Weight: 136.0791 kg

DRUGS (12)
  1. VITAMIN D [Concomitant]
  2. LEVOTHYROXINE SODIUM [Concomitant]
  3. VELCADE [Concomitant]
  4. METOPROLOL TARTRATE [Concomitant]
  5. REVLIMID [Suspect]
     Indication: MULTIPLE MYELOMA
     Dosage: 25 MG, QHS X 21 DAYS, PO, 15 MG, QHS X 21 DAYS, PO
     Route: 048
     Dates: start: 20110609
  6. REVLIMID [Suspect]
     Indication: MULTIPLE MYELOMA
     Dosage: 25 MG, QHS X 21 DAYS, PO, 15 MG, QHS X 21 DAYS, PO
     Route: 048
     Dates: start: 20110701
  7. LANTUS [Concomitant]
  8. ZOMETA [Concomitant]
  9. DIOVAN [Concomitant]
  10. ACYCLOVIR [Concomitant]
  11. HUMALOG [Concomitant]
  12. LORTAB [Concomitant]

REACTIONS (3)
  - HYPOTENSION [None]
  - SYNCOPE [None]
  - MUSCLE SPASMS [None]
